FAERS Safety Report 9864071 (Version 1)
Quarter: 2014Q1

REPORT INFORMATION
  Report Type: Spontaneous
  Country: NL (occurrence: NL)
  Receive Date: 20140203
  Receipt Date: 20140203
  Transmission Date: 20141002
  Serious: Yes (Hospitalization)
  Sender: FDA-Public Use
  Company Number: PHHY2014NL011664

PATIENT
  Sex: Male
  Weight: 2 kg

DRUGS (1)
  1. CARBAMAZEPINE [Suspect]
     Dosage: UNK UKN, UNK, MATERNAL DOSE 200 MG BID
     Route: 064

REACTIONS (2)
  - Lethargy [Recovered/Resolved]
  - Thrombocytopenia neonatal [Recovered/Resolved]
